FAERS Safety Report 15357440 (Version 1)
Quarter: 2018Q3

REPORT INFORMATION
  Report Type: Spontaneous
  Country: NO (occurrence: NO)
  Receive Date: 20180906
  Receipt Date: 20180906
  Transmission Date: 20181010
  Serious: Yes (Life-Threatening, Other)
  Sender: FDA-Public Use
  Company Number: NO-NOVOPROD-618823

PATIENT
  Sex: Male
  Weight: 3.49 kg

DRUGS (4)
  1. VITAMIN D                          /00107901/ [Concomitant]
     Active Substance: ERGOCALCIFEROL
     Indication: VITAMIN D DEFICIENCY
     Dosage: 1000 IU
     Route: 064
     Dates: end: 20180522
  2. FIASP [Concomitant]
     Active Substance: INSULIN ASPART
     Indication: TYPE 1 DIABETES MELLITUS
     Dosage: 6 IU TO BE TAKEN AT MEALS
     Route: 064
  3. AERIUS                             /01009701/ [Concomitant]
     Active Substance: EBASTINE
     Indication: HYPERSENSITIVITY
     Dosage: 5 MG X 1
     Route: 064
  4. TRESIBA [Suspect]
     Active Substance: INSULIN DEGLUDEC
     Indication: TYPE 1 DIABETES MELLITUS
     Dosage: 16 IU
     Route: 064
     Dates: end: 20180522

REACTIONS (5)
  - Neonatal respiratory failure [Recovered/Resolved]
  - Hypoglycaemia neonatal [Recovered/Resolved with Sequelae]
  - Premature baby [Unknown]
  - Neonatal asphyxia [Recovered/Resolved]
  - Foetal exposure during pregnancy [Recovered/Resolved]

NARRATIVE: CASE EVENT DATE: 20180522
